FAERS Safety Report 7793314-9 (Version None)
Quarter: 2011Q4

REPORT INFORMATION
  Report Type: 
  Country: None (occurrence: None)
  Receive Date: 20111003
  Receipt Date: 20110926
  Transmission Date: 20120403
  Serious: Yes (Death, Hospitalization, Other)
  Sender: FDA-Public Use
  Company Number: JP-GENZYME-THYM-1002555

PATIENT
  Sex: Male
  Weight: 53 kg

DRUGS (56)
  1. THYMOGLOBULIN [Suspect]
     Indication: BONE MARROW CONDITIONING REGIMEN
     Dosage: 66 MG, QD
     Route: 042
     Dates: start: 20100210, end: 20100211
  2. GLUTATHIONE [Concomitant]
     Indication: PROPHYLAXIS
     Dosage: UNK
     Dates: start: 20100204, end: 20100401
  3. GRANISETRON HYDROCHLORIDE [Concomitant]
     Indication: PROPHYLAXIS OF NAUSEA AND VOMITING
     Dosage: UNK
     Dates: start: 20100204, end: 20100314
  4. HYDROCORTISONE SODIUM SUCCINATE [Concomitant]
     Indication: PROPHYLAXIS OF NAUSEA AND VOMITING
     Dosage: UNK
     Dates: start: 20100204, end: 20100212
  5. DALTEPARIN SODIUM [Concomitant]
     Indication: PROPHYLAXIS
     Dosage: UNK
     Dates: start: 20100204, end: 20100330
  6. PIPERACILLIN SODIUM [Concomitant]
     Indication: INFECTION PROPHYLAXIS
     Dosage: UNK
     Dates: start: 20100204, end: 20100216
  7. PLATELETS, CONCENTRATED [Concomitant]
     Dosage: UNK
     Dates: start: 20100217, end: 20100219
  8. PLATELETS, CONCENTRATED [Concomitant]
     Dosage: UNK
     Dates: start: 20100221, end: 20100224
  9. IFOSFAMIDE [Concomitant]
     Dosage: UNK
     Dates: start: 20090924, end: 20090926
  10. PIRARUBICIN HYDROCHLORIDE [Concomitant]
     Dosage: UNK
     Dates: start: 20090827, end: 20090827
  11. MELPHALAN HYDROCHLORIDE [Concomitant]
     Indication: BONE MARROW CONDITIONING REGIMEN
     Dosage: UNK
     Dates: start: 20100209, end: 20100210
  12. TACROLIMUS [Concomitant]
     Indication: PROPHYLAXIS AGAINST GRAFT VERSUS HOST DISEASE
     Dosage: UNK
     Dates: start: 20100211, end: 20100225
  13. METHOTREXATE [Concomitant]
     Indication: PROPHYLAXIS AGAINST GRAFT VERSUS HOST DISEASE
     Dosage: UNK
     Dates: start: 20100214, end: 20100214
  14. ZOVIRAX [Concomitant]
     Indication: INFECTION PROPHYLAXIS
     Dosage: UNK
     Dates: start: 20100205, end: 20100321
  15. ETHYL ICOSAPENTATE [Concomitant]
     Indication: PROPHYLAXIS
     Dosage: UNK
     Dates: start: 20100205, end: 20100430
  16. CARBOPLATIN [Concomitant]
     Dosage: UNK
     Dates: start: 20090828, end: 20090828
  17. PREDNISOLONE [Concomitant]
     Indication: PROPHYLAXIS AGAINST GRAFT VERSUS HOST DISEASE
     Dosage: UNK
     Dates: start: 20100225, end: 20100723
  18. ITRACONAZOL A [Concomitant]
     Indication: INFECTION PROPHYLAXIS
     Dosage: UNK
     Dates: start: 20100401
  19. PLATELETS, CONCENTRATED [Concomitant]
     Indication: EWING'S SARCOMA RECURRENT
     Dosage: UNK
     Dates: start: 20100214, end: 20100215
  20. PLATELETS, CONCENTRATED [Concomitant]
     Dosage: UNK
     Dates: start: 20100805, end: 20100806
  21. ETOPOSIDE [Concomitant]
     Indication: EWING'S SARCOMA RECURRENT
     Dosage: UNK
     Dates: start: 20090803, end: 20090805
  22. PIRARUBICIN HYDROCHLORIDE [Concomitant]
     Indication: EWING'S SARCOMA RECURRENT
     Dosage: UNK
     Dates: start: 20090804, end: 20090804
  23. CARBOPLATIN [Concomitant]
     Indication: EWING'S SARCOMA RECURRENT
     Dosage: UNK
     Dates: start: 20090805, end: 20090805
  24. CYCLOPHOSPHAMIDE MONOHYDRATE [Concomitant]
     Indication: EWING'S SARCOMA RECURRENT
     Dosage: UNK
     Dates: start: 20091026, end: 20091027
  25. GLYCYRRHIZIN GLYCINE CYTEINE COMBINED [Concomitant]
     Indication: PROPHYLAXIS
     Dosage: UNK
     Dates: start: 20100204, end: 20100401
  26. PREDNISOLONE ACETATE [Concomitant]
     Indication: PROPHYLAXIS AGAINST GRAFT VERSUS HOST DISEASE
     Dosage: UNK
     Dates: start: 20100212, end: 20100326
  27. FILGRASTIM [Concomitant]
     Indication: WHITE BLOOD CELL COUNT
     Dosage: UNK
     Dates: start: 20100213, end: 20100226
  28. IMIPEM [Concomitant]
     Indication: INFECTION PROPHYLAXIS
     Dosage: UNK
     Dates: start: 20100217, end: 20100222
  29. PREDNISOLONE [Concomitant]
     Dosage: UNK
     Dates: start: 20100711
  30. PLATELETS, CONCENTRATED [Concomitant]
     Dosage: UNK
     Dates: start: 20100227, end: 20100227
  31. PLATELETS, CONCENTRATED [Concomitant]
     Dosage: UNK
     Dates: start: 20100308, end: 20100308
  32. IFOSFAMIDE [Concomitant]
     Indication: EWING'S SARCOMA RECURRENT
     Dosage: UNK
     Dates: start: 20090803, end: 20090805
  33. MICAFUNGIN SODIUM [Concomitant]
     Indication: INFECTION PROPHYLAXIS
     Dosage: UNK
     Dates: start: 20100204, end: 20100331
  34. METHYLPREDNISOLONE SODIUM SUCCINATE [Concomitant]
     Indication: PREMEDICATION
     Dosage: UNK
     Dates: start: 20100210, end: 20100211
  35. HYDROXYZINE HYDROCHLORIDE [Concomitant]
     Indication: PREMEDICATION
     Dosage: UNK
     Dates: start: 20100210, end: 20100806
  36. TACROLIMUS [Concomitant]
     Dosage: UNK
     Dates: start: 20100226, end: 20100623
  37. METHOTREXATE [Concomitant]
     Dosage: UNK
     Dates: start: 20100218, end: 20100218
  38. CEFTRIAXONE [Concomitant]
     Indication: INFECTION PROPHYLAXIS
     Dosage: UNK
     Dates: start: 20100228, end: 20100301
  39. VANCOMYCIN HYCHLORIDE [Concomitant]
     Indication: INFECTION PROPHYLAXIS
     Dosage: UNK
     Dates: start: 20100204, end: 20100305
  40. CARBOPLATIN [Concomitant]
     Dosage: UNK
     Dates: start: 20090926, end: 20090926
  41. CEFTRIAXONE [Concomitant]
     Dosage: UNK
     Dates: start: 20100806, end: 20100807
  42. POLYMYXIN B SULFATE [Concomitant]
     Indication: INFECTION PROPHYLAXIS
     Dosage: UNK
     Dates: start: 20100204, end: 20100305
  43. FLUCONAL [Concomitant]
     Indication: INFECTION PROPHYLAXIS
     Dosage: UNK
     Dates: start: 20100205, end: 20100402
  44. SULFAMETHOPRIM [Concomitant]
     Indication: INFECTION PROPHYLAXIS
     Dosage: UNK
     Dates: start: 20100225
  45. IFOSFAMIDE [Concomitant]
     Dosage: UNK
     Dates: start: 20090826, end: 20090828
  46. VINCRISTINE SULFATE [Concomitant]
     Indication: EWING'S SARCOMA RECURRENT
     Dosage: UNK
     Dates: start: 20091026, end: 20091028
  47. VINCRISTINE SULFATE [Concomitant]
     Dosage: UNK
     Dates: start: 20091120, end: 20091121
  48. CYCLOPHOSPHAMIDE MONOHYDRATE [Concomitant]
     Dosage: UNK
     Dates: start: 20091120, end: 20091121
  49. FAMOTIDINE [Concomitant]
     Indication: HAEMORRHAGE PROPHYLAXIS
     Dosage: UNK
     Dates: start: 20100204, end: 20100303
  50. HYDROCORTISONE SODIUM SUCCINATE [Concomitant]
     Indication: PREMEDICATION
  51. URSODIOL [Concomitant]
     Indication: PROPHYLAXIS
     Dosage: UNK
     Dates: start: 20100205, end: 20100430
  52. PLATELETS, CONCENTRATED [Concomitant]
     Dosage: UNK
     Dates: start: 20100726, end: 20100727
  53. FLUDARA [Suspect]
     Indication: BONE MARROW CONDITIONING REGIMEN
     Dosage: UNK
     Route: 065
     Dates: start: 20100204, end: 20100208
  54. ETOPOSIDE [Concomitant]
     Dosage: UNK
     Dates: start: 20090824, end: 20090926
  55. PIRARUBICIN HYDROCHLORIDE [Concomitant]
     Dosage: UNK
     Dates: start: 20090925, end: 20090925
  56. MICAFUNGIN SODIUM [Concomitant]
     Dosage: UNK
     Dates: start: 20100808

REACTIONS (28)
  - LUNG NEOPLASM [None]
  - MELAENA [None]
  - CHEST WALL MASS [None]
  - PAIN [None]
  - LOBAR PNEUMONIA [None]
  - HYPONATRAEMIA [None]
  - ACUTE GRAFT VERSUS HOST DISEASE IN INTESTINE [None]
  - RADIATION PNEUMONITIS [None]
  - INSOMNIA [None]
  - MEMORY IMPAIRMENT [None]
  - RENAL IMPAIRMENT [None]
  - CANDIDIASIS [None]
  - URINARY RETENTION [None]
  - PSEUDOMONAS INFECTION [None]
  - PNEUMONIA [None]
  - INFECTIOUS PERITONITIS [None]
  - PANCREATITIS [None]
  - INFECTION [None]
  - HEPATIC FUNCTION ABNORMAL [None]
  - DIARRHOEA [None]
  - FEBRILE NEUTROPENIA [None]
  - DECREASED APPETITE [None]
  - DEPRESSION [None]
  - NAUSEA [None]
  - BONE MARROW FAILURE [None]
  - ENCEPHALITIS HERPES [None]
  - ACUTE GRAFT VERSUS HOST DISEASE IN SKIN [None]
  - ENTEROCOCCAL INFECTION [None]
